FAERS Safety Report 16890257 (Version 10)
Quarter: 2021Q3

REPORT INFORMATION
  Report Type: Report from Study
  Country: FI (occurrence: FI)
  Receive Date: 20191007
  Receipt Date: 20210907
  Transmission Date: 20211014
  Serious: Yes (Hospitalization)
  Sender: FDA-Public Use
  Company Number: FI-ROCHE-2428793

PATIENT
  Age: 69 Year
  Sex: Female
  Weight: 54.5 kg

DRUGS (28)
  1. ZINACEF [Concomitant]
     Active Substance: CEFUROXIME SODIUM
     Indication: PREMEDICATION
     Dosage: PREMEDICATION FOR EYE OPERATION
     Dates: start: 20191021, end: 20191021
  2. BEVACIZUMAB. [Suspect]
     Active Substance: BEVACIZUMAB
     Route: 042
     Dates: start: 20200227
  3. SOMAC [Concomitant]
     Active Substance: PANTOPRAZOLE SODIUM
     Dates: start: 20190206
  4. PANADOL [Concomitant]
     Active Substance: ACETAMINOPHEN
     Indication: PAIN
  5. FENTANYL. [Concomitant]
     Active Substance: FENTANYL
     Dosage: MEDICATION FOR EYE OPERATION
     Dates: start: 20191021, end: 20191021
  6. ROCURONIUM [Concomitant]
     Active Substance: ROCURONIUM BROMIDE
     Dosage: MEDICATION FOR EYE OPERATION
     Dates: start: 20191021, end: 20191021
  7. ATEZOLIZUMAB. [Suspect]
     Active Substance: ATEZOLIZUMAB
     Indication: OVARIAN CANCER
     Dosage: DATE OF MOST RECENT DOSE OF ATEZOLIZUMAB PRIOR TO AE ONSET ON 18/JUN/2019: 1200 MG
     Route: 041
     Dates: start: 20190207
  8. PACLITAXEL. [Suspect]
     Active Substance: PACLITAXEL
     Indication: OVARIAN CANCER
     Dosage: DOSE OF LAST PACLITAXEL ADMINISTERED PRIOR TO AE ONSET 261 MG ON 29/MAY/2019
     Route: 042
     Dates: start: 20190207
  9. CARBOPLATIN. [Suspect]
     Active Substance: CARBOPLATIN
     Indication: OVARIAN CANCER
     Dosage: DOSE OF LAST CARBOPLATIN ADMINISTERED PRIOR TO AE ONSET 541 MG ON 29/MAY/2019
     Route: 042
     Dates: start: 20190207
  10. TYRAZOL [Concomitant]
     Active Substance: CARBIMAZOLE
     Indication: HYPOTHYROIDISM
     Dates: start: 20190712, end: 20200804
  11. ONDANSETRON [Concomitant]
     Active Substance: ONDANSETRON
     Dosage: MEDICATION FOR EYE OPERATION
     Dates: start: 20191021, end: 20191021
  12. PROPOFOL. [Concomitant]
     Active Substance: PROPOFOL
     Dosage: ANESTHETIC FOR EYE OPERATION
     Dates: start: 20191021, end: 20191021
  13. IMMUNOGLOBULINES HUMAINES CNTS [Concomitant]
     Active Substance: HUMAN IMMUNOGLOBULIN G
     Dates: start: 20200203, end: 20200203
  14. OFTAGEL [Concomitant]
     Active Substance: CARBOMER
     Indication: DRY EYE
     Dates: start: 20190830
  15. ORADEXON [Concomitant]
     Active Substance: DEXAMETHASONE
     Dosage: PREMEDICATION FOR EYE OPERATION
     Route: 042
     Dates: start: 20191021, end: 20191021
  16. PEGORION [Concomitant]
     Active Substance: POLYETHYLENE GLYCOL 4000
     Indication: CONSTIPATION
     Dates: start: 20190206, end: 20190910
  17. AMLODIPIN [Concomitant]
     Active Substance: AMLODIPINE BESYLATE
     Indication: HYPERTENSION
     Dates: start: 20190712, end: 20210510
  18. FURESIS [Concomitant]
     Active Substance: FUROSEMIDE
     Dates: start: 20200505
  19. MINISUN [Concomitant]
     Active Substance: CHOLECALCIFEROL
  20. BURANA [Concomitant]
     Active Substance: IBUPROFEN
     Indication: PAIN
  21. CARDACE (FINLAND) [Concomitant]
     Indication: HYPERTENSION
     Dates: start: 20190529, end: 20210510
  22. VISCOTEARS [Concomitant]
     Active Substance: CARBOMER
     Dates: start: 20190712
  23. GLYCOSTIGMIN [Concomitant]
     Dosage: MEDICATION FOR EYE OPERATION
     Dates: start: 20191021, end: 20191021
  24. PARACETAMOL [Concomitant]
     Active Substance: ACETAMINOPHEN
     Dosage: MEDICATION FOR EYE OPERATION
     Dates: start: 20191021, end: 20191021
  25. PROPOFOL. [Concomitant]
     Active Substance: PROPOFOL
     Dosage: ANESTHETIC FOR EYE OPERATION
     Dates: start: 20191021, end: 20191021
  26. BEVACIZUMAB. [Suspect]
     Active Substance: BEVACIZUMAB
     Indication: OVARIAN CANCER
     Dosage: DOSE OF LAST BEVACIZUMAB ADMINISTERED PRIOR TO AE ONSET 730 MG ON 10/SEP/2019
     Route: 042
     Dates: start: 20190227
  27. DIAZEPAM. [Concomitant]
     Active Substance: DIAZEPAM
     Indication: PREMEDICATION
     Dosage: PREMEDICATION FOR EYE OPERATION
     Dates: start: 20191021, end: 20191021
  28. ADRENALINE;LIDOCAINE [Concomitant]
     Indication: PREMEDICATION
     Dosage: PREMEDICATION FOR EYE OPERATION
     Dates: start: 20191021, end: 20191021

REACTIONS (2)
  - Optic neuropathy [Not Recovered/Not Resolved]
  - Optic neuropathy [Recovered/Resolved]

NARRATIVE: CASE EVENT DATE: 20190917
